FAERS Safety Report 6477492-X (Version None)
Quarter: 2009Q4

REPORT INFORMATION
  Report Type: 
  Country: None (occurrence: None)
  Receive Date: 20091207
  Receipt Date: 20091119
  Transmission Date: 20100525
  Serious: Yes (Other)
  Sender: FDA-Public Use
  Company Number: US-SANOFI-AVENTIS-A03200903934

PATIENT
  Age: 66 Year
  Sex: Female
  Weight: 68.04 kg

DRUGS (7)
  1. HYDROXYCHLOROQUINE SULFATE [Suspect]
     Indication: STILL'S DISEASE ADULT ONSET
     Route: 048
     Dates: start: 19990101, end: 20090121
  2. METHOTREXATE [Concomitant]
     Indication: STILL'S DISEASE ADULT ONSET
     Route: 048
  3. FOLIC ACID [Concomitant]
     Route: 048
  4. CALCIUM [Concomitant]
  5. TYLENOL (CAPLET) [Concomitant]
     Indication: PAIN
     Route: 048
  6. ALEVE [Concomitant]
     Route: 048
  7. M.V.I. [Concomitant]

REACTIONS (1)
  - DEAFNESS BILATERAL [None]
